FAERS Safety Report 8189162-0 (Version None)
Quarter: 2012Q1

REPORT INFORMATION
  Report Type: 
  Country: None (occurrence: None)
  Receive Date: 20120306
  Receipt Date: 20120306
  Transmission Date: 20120608
  Serious: No
  Sender: FDA-Public Use
  Company Number: None

PATIENT
  Sex: Female
  Weight: 93.441 kg

DRUGS (1)
  1. AMITRIPTYLINE HCL 50MG QUALITEST [Suspect]
     Indication: PAIN
     Dosage: TAKE 2 TABLETS AT BEDTIME
     Dates: start: 20120214, end: 20120225

REACTIONS (2)
  - SPEECH DISORDER [None]
  - URINE OUTPUT DECREASED [None]
